FAERS Safety Report 5345218-9 (Version None)
Quarter: 2007Q2

REPORT INFORMATION
  Report Type: 
  Country: None (occurrence: None)
  Receive Date: 20070605
  Receipt Date: 20070524
  Transmission Date: 20071010
  Serious: Yes (Hospitalization)
  Sender: FDA-Public Use
  Company Number: PHBS2007JP07257

PATIENT
  Age: 43 Year
  Sex: Male

DRUGS (7)
  1. SIMULECT [Suspect]
     Indication: RENAL AND PANCREAS TRANSPLANT
     Dosage: 20 MG, ONCE/SINGLE
     Route: 042
     Dates: start: 20060125, end: 20060125
  2. SIMULECT [Suspect]
     Dosage: 20 MG, ONCE/SINGLE
     Route: 042
     Dates: start: 20060129, end: 20060129
  3. PROGRAF [Suspect]
     Indication: RENAL AND PANCREAS TRANSPLANT
     Dosage: 5 MG/D
     Route: 042
     Dates: start: 20060126, end: 20060201
  4. PROGRAF [Suspect]
     Dosage: 10 MG/D
     Route: 048
     Dates: start: 20060202
  5. CELLCEPT [Suspect]
     Indication: RENAL AND PANCREAS TRANSPLANT
     Dosage: 1 G/D
     Route: 048
     Dates: start: 20060129
  6. PREDNISOLONE [Suspect]
     Indication: RENAL AND PANCREAS TRANSPLANT
     Dosage: 50 MG/D
     Route: 042
     Dates: start: 20060126
  7. PREDNISOLONE [Suspect]
     Dosage: 50 MG/D
     Route: 048
     Dates: start: 20060126

REACTIONS (12)
  - ABSCESS [None]
  - BACK PAIN [None]
  - BLADDER CATHETERISATION [None]
  - POSTOPERATIVE WOUND INFECTION [None]
  - PURULENT DISCHARGE [None]
  - PYREXIA [None]
  - SERRATIA INFECTION [None]
  - SOFT TISSUE NECROSIS [None]
  - SURGERY [None]
  - URETHRAL STENOSIS [None]
  - URINE OUTPUT DECREASED [None]
  - WOUND DEHISCENCE [None]
